FAERS Safety Report 25169010 (Version 4)
Quarter: 2025Q2

REPORT INFORMATION
  Report Type: Report from Study
  Country: AR (occurrence: AR)
  Receive Date: 20250407
  Receipt Date: 20250512
  Transmission Date: 20250717
  Serious: Yes (Hospitalization, Other)
  Sender: UCB
  Company Number: AR-UCBSA-2025019472

PATIENT
  Age: 4 Year
  Sex: Male

DRUGS (11)
  1. BRIVARACETAM [Suspect]
     Active Substance: BRIVARACETAM
     Indication: Epilepsy
     Dosage: 50 MILLIGRAM, ONCE DAILY (QD)
     Route: 048
     Dates: start: 20250108, end: 20250307
  2. BRIVARACETAM [Suspect]
     Active Substance: BRIVARACETAM
     Dosage: 100 MILLIGRAM, ONCE DAILY (QD)
     Route: 048
  3. BRIVARACETAM [Suspect]
     Active Substance: BRIVARACETAM
     Dosage: 4 MILLIGRAM, ONCE DAILY (QD)
     Route: 048
     Dates: start: 202504
  4. BRIVARACETAM [Suspect]
     Active Substance: BRIVARACETAM
  5. LEVETIRACETAM [Suspect]
     Active Substance: LEVETIRACETAM
     Indication: Epilepsy
     Dosage: 400 MILLIGRAM, ONCE DAILY (QD)
  6. VALPROIC ACID [Concomitant]
     Active Substance: VALPROIC ACID
     Indication: Epilepsy
     Dosage: 40 MILLIGRAM, ONCE DAILY (QD)
  7. VALPROIC ACID [Concomitant]
     Active Substance: VALPROIC ACID
     Dosage: 500 MILLIGRAM, 2X/DAY (BID)
  8. TOPIRAMATE [Concomitant]
     Active Substance: TOPIRAMATE
     Indication: Product used for unknown indication
     Dosage: 8 MILLIGRAM, ONCE DAILY (QD)
  9. TOPIRAMATE [Concomitant]
     Active Substance: TOPIRAMATE
     Dosage: 100 MILLIGRAM, 2X/DAY (BID)
  10. CONVUPIDIOL [Concomitant]
     Indication: Product used for unknown indication
     Dosage: 16 MILLIGRAM, ONCE DAILY (QD)
  11. CANNABIDIOL\HERBALS\TETRAHYDROCANNABINOL UNSPECIFIED [Concomitant]
     Active Substance: CANNABIDIOL\HERBALS\TETRAHYDROCANNABINOL UNSPECIFIED
     Indication: Epilepsy
     Dosage: 1 MILLILITER, 2X/DAY (BID)

REACTIONS (24)
  - Febrile convulsion [Recovered/Resolved]
  - Partial seizures with secondary generalisation [Unknown]
  - Petit mal epilepsy [Unknown]
  - Status epilepticus [Unknown]
  - Muscle rigidity [Unknown]
  - Seizure [Unknown]
  - Aggression [Unknown]
  - Vomiting [Unknown]
  - Pyrexia [Unknown]
  - Body temperature fluctuation [Unknown]
  - Gaze palsy [Unknown]
  - Altered state of consciousness [Unknown]
  - Tonic convulsion [Recovered/Resolved]
  - Endotracheal intubation [Recovered/Resolved]
  - Epileptic encephalopathy [Not Recovered/Not Resolved]
  - Dyskinesia [Unknown]
  - Tremor [Unknown]
  - Extrapyramidal disorder [Unknown]
  - Irritability [Unknown]
  - Sleep disorder [Not Recovered/Not Resolved]
  - Disturbance in social behaviour [Not Recovered/Not Resolved]
  - Dysphagia [Not Recovered/Not Resolved]
  - Inappropriate schedule of product administration [Unknown]
  - Product use issue [Unknown]

NARRATIVE: CASE EVENT DATE: 20250307
